FAERS Safety Report 7432174-2 (Version None)
Quarter: 2011Q2

REPORT INFORMATION
  Report Type: 
  Country: None (occurrence: None)
  Receive Date: 20110422
  Receipt Date: 20110407
  Transmission Date: 20111010
  Serious: Yes (Death, Life-Threatening, Other)
  Sender: FDA-Public Use
  Company Number: US-CELGENEUS-163-20785-11031600

PATIENT
  Sex: Male
  Weight: 101 kg

DRUGS (8)
  1. DECADRON [Concomitant]
     Indication: MULTIPLE MYELOMA
     Dosage: 40 MILLIGRAM
     Route: 048
     Dates: start: 20050701, end: 20051101
  2. DOXIL [Concomitant]
     Indication: MULTIPLE MYELOMA
     Dosage: 62 MILLIGRAM
     Route: 051
     Dates: start: 20051201, end: 20060301
  3. AREDIA [Concomitant]
     Dosage: 90 MILLIGRAM
     Route: 051
     Dates: start: 20050801, end: 20090501
  4. REVLIMID [Suspect]
     Dosage: 10 MILLIGRAM
     Route: 048
     Dates: start: 20100922, end: 20101223
  5. CYTOXAN [Concomitant]
     Dosage: 750 MILLIGRAM
     Route: 065
     Dates: start: 20090324, end: 20101201
  6. THALOMID [Suspect]
     Indication: MULTIPLE MYELOMA
     Dosage: 200 MILLIGRAM
     Route: 048
     Dates: start: 20050726, end: 20051201
  7. REVLIMID [Suspect]
     Indication: MULTIPLE MYELOMA
     Dosage: 10 MILLIGRAM
     Route: 048
     Dates: start: 20090317, end: 20090612
  8. VELCADE [Concomitant]
     Dosage: 2.7 MILLIGRAM
     Route: 051
     Dates: start: 20051201, end: 20060301

REACTIONS (2)
  - SMALL INTESTINE CARCINOMA [None]
  - RASH [None]
